FAERS Safety Report 14052746 (Version 1)
Quarter: 2017Q4

REPORT INFORMATION
  Report Type: Spontaneous
  Country: US (occurrence: None)
  Receive Date: 20171005
  Receipt Date: 20171005
  Transmission Date: 20180321
  Serious: No
  Sender: FDA-Public Use
  Company Number: None

PATIENT
  Age: 57 Year
  Sex: Male

DRUGS (2)
  1. PRALUENT [Suspect]
     Active Substance: ALIROCUMAB
     Route: 058
  2. REPATHA [Concomitant]
     Active Substance: EVOLOCUMAB

REACTIONS (4)
  - Product substitution issue [None]
  - Erectile dysfunction [None]
  - Diarrhoea [None]
  - Influenza like illness [None]

NARRATIVE: CASE EVENT DATE: 20171005
